FAERS Safety Report 19877069 (Version 1)
Quarter: 2021Q3

REPORT INFORMATION
  Report Type: Spontaneous
  Country: CA (occurrence: CA)
  Receive Date: 20210924
  Receipt Date: 20210924
  Transmission Date: 20211014
  Serious: Yes (Other)
  Sender: FDA-Public Use
  Company Number: CA-ROCHE-2916025

PATIENT
  Age: 33 Year
  Sex: Female

DRUGS (16)
  1. TACROLIMUS. [Concomitant]
     Active Substance: TACROLIMUS
  2. ZOSTAVAX [Suspect]
     Active Substance: VARICELLA-ZOSTER VIRUS STRAIN OKA/MERCK LIVE ANTIGEN
     Indication: PRODUCT USED FOR UNKNOWN INDICATION
     Route: 065
  3. CANDESARTAN. [Concomitant]
     Active Substance: CANDESARTAN
     Route: 065
  4. LORAZEPAM. [Concomitant]
     Active Substance: LORAZEPAM
     Route: 065
  5. ROSUVASTATIN CALCIUM. [Concomitant]
     Active Substance: ROSUVASTATIN CALCIUM
     Route: 065
  6. BUPROPION. [Concomitant]
     Active Substance: BUPROPION
     Route: 065
  7. MAGNESIUM OXIDE. [Concomitant]
     Active Substance: MAGNESIUM OXIDE
     Route: 065
  8. METHYLPREDNISOLONE SODIUM SUCCINATE. [Concomitant]
     Active Substance: METHYLPREDNISOLONE SODIUM SUCCINATE
     Indication: PREMEDICATION
     Route: 042
  9. VITAMIN D3 [Concomitant]
     Active Substance: CHOLECALCIFEROL
  10. BENADRYL [Concomitant]
     Active Substance: DIPHENHYDRAMINE HYDROCHLORIDE
     Indication: PREMEDICATION
     Route: 048
  11. PROCHLORAZINE [Concomitant]
     Route: 065
  12. RITUXIMAB. [Suspect]
     Active Substance: RITUXIMAB
     Indication: GLOMERULONEPHRITIS MEMBRANOUS
     Route: 042
  13. RIBOFLAVIN [Concomitant]
     Active Substance: RIBOFLAVIN
  14. RITUXIMAB. [Suspect]
     Active Substance: RITUXIMAB
     Route: 042
  15. FERROUS FUMARATE [Concomitant]
     Active Substance: FERROUS FUMARATE
  16. LASIX [Concomitant]
     Active Substance: FUROSEMIDE

REACTIONS (5)
  - Migraine [Unknown]
  - Pneumonia [Unknown]
  - Intentional product use issue [Unknown]
  - Off label use [Unknown]
  - Pain [Unknown]
